FAERS Safety Report 16913636 (Version 1)
Quarter: 2019Q4

REPORT INFORMATION
  Report Type: Spontaneous
  Country: US (occurrence: US)
  Receive Date: 20191014
  Receipt Date: 20191014
  Transmission Date: 20200122
  Serious: No
  Sender: FDA-Public Use
  Company Number: US-ASTRAZENECA-2019SF34956

PATIENT
  Sex: Female

DRUGS (1)
  1. CRESTOR [Suspect]
     Active Substance: ROSUVASTATIN CALCIUM
     Route: 048

REACTIONS (6)
  - Arthralgia [Unknown]
  - Anxiety [Unknown]
  - Dizziness [Unknown]
  - Feeling abnormal [Unknown]
  - Hypersensitivity [Unknown]
  - Headache [Unknown]
